FAERS Safety Report 4791016-4 (Version None)
Quarter: 2005Q4

REPORT INFORMATION
  Report Type: 
  Country: None (occurrence: None)
  Receive Date: 20051007
  Receipt Date: 20050929
  Transmission Date: 20060501
  Serious: Yes (Other)
  Sender: FDA-Public Use
  Company Number: FR-JNJFOC-20051000728

PATIENT
  Sex: Female

DRUGS (2)
  1. RISPERDAL [Suspect]
     Indication: BIPOLAR DISORDER
     Route: 048
  2. TERALITHE [Concomitant]
     Route: 065

REACTIONS (4)
  - DIFFICULTY IN WALKING [None]
  - DYSKINESIA [None]
  - DYSPHONIA [None]
  - TREMOR [None]
